FAERS Safety Report 11021432 (Version 1)
Quarter: 2015Q2

REPORT INFORMATION
  Report Type: Spontaneous
  Country: US (occurrence: US)
  Receive Date: 20150413
  Receipt Date: 20150413
  Transmission Date: 20150821
  Serious: Yes (Other)
  Sender: FDA-Public Use
  Company Number: US-ACTAVIS-2015-07396

PATIENT
  Age: 38 Year
  Sex: Female

DRUGS (1)
  1. CHLORTHALIDONE (WATSON LABORATORIES) [Suspect]
     Active Substance: CHLORTHALIDONE
     Indication: HYPERTENSION
     Dosage: 12.5 MG, DAILY
     Route: 048

REACTIONS (2)
  - Myopia [Recovered/Resolved]
  - Angle closure glaucoma [Recovered/Resolved]
